FAERS Safety Report 16430844 (Version 2)
Quarter: 2019Q3

REPORT INFORMATION
  Report Type: Report from Study
  Country: IT (occurrence: IT)
  Receive Date: 20190614
  Receipt Date: 20190805
  Transmission Date: 20191004
  Serious: Yes (Other)
  Sender: FDA-Public Use
  Company Number: IT-TEVA-2019-IT-1061628

PATIENT
  Age: 9 Year
  Sex: Male
  Weight: 37 kg

DRUGS (16)
  1. UROMITEXAN [Suspect]
     Active Substance: MESNA
     Indication: ACUTE LYMPHOCYTIC LEUKAEMIA
     Route: 042
     Dates: start: 20181201, end: 20181202
  2. UROMITEXAN [Suspect]
     Active Substance: MESNA
     Route: 042
     Dates: start: 20181130, end: 20181130
  3. ENDOXAN BAXTER [Suspect]
     Active Substance: CYCLOPHOSPHAMIDE
     Indication: ACUTE LYMPHOCYTIC LEUKAEMIA
     Route: 042
     Dates: start: 20181130, end: 20181130
  4. LEDERFOLIN [Concomitant]
     Active Substance: LEUCOVORIN CALCIUM
     Route: 042
     Dates: start: 20181201, end: 20181201
  5. ZOFRAN [Concomitant]
     Active Substance: ONDANSETRON HYDROCHLORIDE
     Indication: PROPHYLAXIS
     Route: 042
     Dates: start: 20181129
  6. DECADRON [Concomitant]
     Active Substance: DEXAMETHASONE
     Route: 042
     Dates: start: 20181129, end: 20181203
  7. LEDERFOLIN [Concomitant]
     Active Substance: LEUCOVORIN CALCIUM
     Route: 042
     Dates: start: 20181202, end: 20181202
  8. LASIX [Concomitant]
     Active Substance: FUROSEMIDE
     Route: 042
     Dates: start: 20181129
  9. DILATREND [Concomitant]
     Active Substance: CARVEDILOL
     Route: 048
  10. MYCOSTATIN [Concomitant]
     Active Substance: NYSTATIN
     Route: 048
     Dates: start: 20180720
  11. ENDOXAN BAXTER [Suspect]
     Active Substance: CYCLOPHOSPHAMIDE
     Route: 042
     Dates: start: 20181201, end: 20181202
  12. ANTRA [Concomitant]
     Active Substance: OMEPRAZOLE
     Route: 042
     Dates: start: 20181129
  13. METHOTREXATE. [Suspect]
     Active Substance: METHOTREXATE
     Indication: ACUTE LYMPHOCYTIC LEUKAEMIA
     Route: 037
     Dates: start: 20181115, end: 20181129
  14. VINCRISTINE [Suspect]
     Active Substance: VINCRISTINE
     Indication: ACUTE LYMPHOCYTIC LEUKAEMIA
     Route: 042
     Dates: start: 20181129, end: 20181204
  15. URBASON [Concomitant]
     Active Substance: METHYLPREDNISOLONE
     Route: 037
     Dates: start: 20181115, end: 20181129
  16. METHOTREXATE. [Suspect]
     Active Substance: METHOTREXATE
     Route: 042
     Dates: start: 20181115, end: 20181220

REACTIONS (1)
  - Proctalgia [Recovered/Resolved]

NARRATIVE: CASE EVENT DATE: 20181202
